FAERS Safety Report 25083158 (Version 1)
Quarter: 2025Q1

REPORT INFORMATION
  Report Type: Spontaneous
  Country: BE (occurrence: BE)
  Receive Date: 20250317
  Receipt Date: 20250317
  Transmission Date: 20250408
  Serious: Yes (Other)
  Sender: ASTELLAS
  Company Number: BE-GILEAD-2025-0706441

PATIENT
  Age: 62 Year
  Sex: Male

DRUGS (2)
  1. AMPHOTERICIN B [Suspect]
     Active Substance: AMPHOTERICIN B
     Indication: Fungal infection
     Route: 065
  2. VORICONAZOLE [Concomitant]
     Active Substance: VORICONAZOLE
     Indication: Product used for unknown indication
     Route: 065

REACTIONS (5)
  - Scedosporium infection [Unknown]
  - Epilepsy [Unknown]
  - Fusarium infection [Unknown]
  - Fungal infection [Unknown]
  - Shigella infection [Unknown]
